FAERS Safety Report 7852945-8 (Version None)
Quarter: 2011Q4

REPORT INFORMATION
  Report Type: 
  Country: None (occurrence: None)
  Receive Date: 20111026
  Receipt Date: 20110910
  Transmission Date: 20120403
  Serious: No
  Sender: FDA-Public Use
  Company Number: US-BAYER-2011-103139

PATIENT
  Age: 79 Year
  Sex: Female

DRUGS (6)
  1. LEUKINE [Suspect]
     Indication: NON-HODGKIN'S LYMPHOMA
     Dosage: UNK
     Dates: start: 20110909
  2. RITUXAN [Concomitant]
     Indication: NON-HODGKIN'S LYMPHOMA
     Dosage: UNK
     Dates: start: 20110909
  3. RITUXAN [Concomitant]
     Indication: PARANEOPLASTIC SYNDROME
  4. HERBAL PREPARATION [Concomitant]
     Indication: NON-HODGKIN'S LYMPHOMA
     Dosage: UNK
     Dates: start: 20110909
  5. LEUKINE [Suspect]
     Indication: PARANEOPLASTIC SYNDROME
  6. HERBAL PREPARATION [Concomitant]
     Indication: PARANEOPLASTIC SYNDROME

REACTIONS (2)
  - ERUCTATION [None]
  - DYSPEPSIA [None]
